FAERS Safety Report 21415793 (Version 3)
Quarter: 2022Q4

REPORT INFORMATION
  Report Type: Spontaneous
  Country: US (occurrence: US)
  Receive Date: 20221006
  Receipt Date: 20221219
  Transmission Date: 20230112
  Serious: No
  Sender: FDA-Public Use
  Company Number: US-TOLMAR, INC.-22US036784

PATIENT
  Age: 11 Year
  Sex: Male

DRUGS (1)
  1. FENSOLVI [Suspect]
     Active Substance: LEUPROLIDE ACETATE
     Indication: Precocious puberty
     Dosage: UNK
     Dates: start: 20220907

REACTIONS (7)
  - Product administration error [Unknown]
  - Device leakage [Unknown]
  - Syringe issue [Unknown]
  - Incorrect dose administered [Unknown]
  - Drug ineffective [Unknown]
  - Blood luteinising hormone abnormal [Unknown]
  - Blood testosterone abnormal [Unknown]

NARRATIVE: CASE EVENT DATE: 20220901
